FAERS Safety Report 23768837 (Version 1)
Quarter: 2024Q2

REPORT INFORMATION
  Report Type: Other
  Country: CN (occurrence: None)
  Receive Date: 20240422
  Receipt Date: 20240422
  Transmission Date: 20240716
  Serious: Yes (Other)
  Sender: FDA-Public Use
  Company Number: CN-ROCHE-3547412

PATIENT

DRUGS (24)
  1. BEVACIZUMAB [Suspect]
     Active Substance: BEVACIZUMAB
     Indication: Squamous cell carcinoma
     Route: 042
  2. BEVACIZUMAB [Suspect]
     Active Substance: BEVACIZUMAB
     Indication: Adenocarcinoma
  3. BEVACIZUMAB [Suspect]
     Active Substance: BEVACIZUMAB
     Indication: Adenosquamous cell carcinoma
  4. PACLITAXEL [Suspect]
     Active Substance: PACLITAXEL
     Indication: Squamous cell carcinoma
     Route: 065
  5. PACLITAXEL [Suspect]
     Active Substance: PACLITAXEL
     Indication: Adenocarcinoma
  6. PACLITAXEL [Suspect]
     Active Substance: PACLITAXEL
     Indication: Adenosquamous cell carcinoma
  7. CISPLATIN [Suspect]
     Active Substance: CISPLATIN
     Indication: Squamous cell carcinoma
     Route: 065
  8. CISPLATIN [Suspect]
     Active Substance: CISPLATIN
     Indication: Adenocarcinoma
  9. CISPLATIN [Suspect]
     Active Substance: CISPLATIN
     Indication: Adenosquamous cell carcinoma
  10. CARBOPLATIN [Suspect]
     Active Substance: CARBOPLATIN
     Indication: Squamous cell carcinoma
     Route: 065
  11. CARBOPLATIN [Suspect]
     Active Substance: CARBOPLATIN
     Indication: Adenocarcinoma
  12. CARBOPLATIN [Suspect]
     Active Substance: CARBOPLATIN
     Indication: Adenosquamous cell carcinoma
  13. APATINIB [Suspect]
     Active Substance: APATINIB
     Indication: Squamous cell carcinoma
     Route: 065
  14. APATINIB [Suspect]
     Active Substance: APATINIB
     Indication: Adenocarcinoma
  15. APATINIB [Suspect]
     Active Substance: APATINIB
     Indication: Adenosquamous cell carcinoma
  16. CATEQUENTINIB [Suspect]
     Active Substance: CATEQUENTINIB
     Indication: Squamous cell carcinoma
     Route: 065
  17. CATEQUENTINIB [Suspect]
     Active Substance: CATEQUENTINIB
     Indication: Adenosquamous cell carcinoma
  18. CATEQUENTINIB [Suspect]
     Active Substance: CATEQUENTINIB
     Indication: Adenocarcinoma
  19. FAMITINIB [Suspect]
     Active Substance: FAMITINIB
     Indication: Squamous cell carcinoma
     Route: 065
  20. FAMITINIB [Suspect]
     Active Substance: FAMITINIB
     Indication: Adenocarcinoma
  21. FAMITINIB [Suspect]
     Active Substance: FAMITINIB
     Indication: Adenosquamous cell carcinoma
  22. LENVATINIB [Suspect]
     Active Substance: LENVATINIB
     Indication: Squamous cell carcinoma
     Route: 065
  23. LENVATINIB [Suspect]
     Active Substance: LENVATINIB
     Indication: Adenocarcinoma
  24. LENVATINIB [Suspect]
     Active Substance: LENVATINIB
     Indication: Adenosquamous cell carcinoma

REACTIONS (5)
  - White blood cell count decreased [Unknown]
  - Platelet count decreased [Unknown]
  - Haemoglobin decreased [Unknown]
  - Gastrointestinal disorder [Unknown]
  - Transaminases increased [Unknown]
